FAERS Safety Report 5894117-2 (Version None)
Quarter: 2008Q3

REPORT INFORMATION
  Report Type: 
  Country: None (occurrence: None)
  Receive Date: 20080923
  Receipt Date: 20080115
  Transmission Date: 20090109
  Serious: No
  Sender: FDA-Public Use
  Company Number: US-ASTRAZENECA-2008UW00885

PATIENT
  Age: 54 Year
  Sex: Male
  Weight: 88.5 kg

DRUGS (10)
  1. SEROQUEL [Suspect]
     Indication: SLEEP DISORDER
     Route: 048
  2. SEROQUEL [Suspect]
     Route: 048
  3. SEROQUEL [Suspect]
     Route: 048
  4. SEROQUEL [Suspect]
     Route: 048
  5. ZYPREXA [Concomitant]
  6. RESTORIL [Concomitant]
  7. AMBIEN [Concomitant]
  8. VALIUM [Concomitant]
  9. TYLENOL (CAPLET) [Concomitant]
  10. TYLENOL (CAPLET) [Concomitant]

REACTIONS (6)
  - COUGH [None]
  - DRY MOUTH [None]
  - FOREIGN BODY TRAUMA [None]
  - ILL-DEFINED DISORDER [None]
  - OFF LABEL USE [None]
  - SOMNOLENCE [None]
